FAERS Safety Report 5697373-9 (Version None)
Quarter: 2008Q2

REPORT INFORMATION
  Report Type: 
  Country: None (occurrence: None)
  Receive Date: 20080408
  Receipt Date: 20080328
  Transmission Date: 20081010
  Serious: Yes (Other)
  Sender: FDA-Public Use
  Company Number: US-BAYER-200818602NA

PATIENT
  Age: 40 Year
  Sex: Female
  Weight: 73 kg

DRUGS (1)
  1. MAGNEVIST SINGLE USE 15ML [Suspect]
     Indication: NUCLEAR MAGNETIC RESONANCE IMAGING BRAIN
     Dosage: TOTAL DAILY DOSE: 15 ML  UNIT DOSE: 15 ML
     Route: 042
     Dates: start: 20080325, end: 20080325

REACTIONS (4)
  - DYSPNOEA [None]
  - ERYTHEMA [None]
  - HYPOAESTHESIA FACIAL [None]
  - PARAESTHESIA [None]
